FAERS Safety Report 11398124 (Version 4)
Quarter: 2017Q3

REPORT INFORMATION
  Report Type: Report from Study
  Country: US (occurrence: US)
  Receive Date: 20150820
  Receipt Date: 20170714
  Transmission Date: 20171127
  Serious: No
  Sender: FDA-Public Use
  Company Number: PHEH2015US016036

PATIENT
  Sex: Female

DRUGS (1)
  1. COSENTYX [Suspect]
     Active Substance: SECUKINUMAB
     Indication: PRODUCT USED FOR UNKNOWN INDICATION
     Dosage: 2 DF, UNK
     Route: 065

REACTIONS (6)
  - Device issue [Unknown]
  - Skin haemorrhage [Unknown]
  - Rash generalised [Unknown]
  - Incorrect dose administered [Unknown]
  - Laceration [Unknown]
  - Erythema [Unknown]
